FAERS Safety Report 23152158 (Version 2)
Quarter: 2025Q2

REPORT INFORMATION
  Report Type: Report from Study
  Country: FR (occurrence: FR)
  Receive Date: 20231107
  Receipt Date: 20250505
  Transmission Date: 20250716
  Serious: Yes (Other)
  Sender: AUROBINDO
  Company Number: FR-RENAUDINFR-2022001705

PATIENT
  Age: 33 Year
  Sex: Female
  Weight: 51 kg

DRUGS (2)
  1. LIDOCAINE [Suspect]
     Active Substance: LIDOCAINE
     Indication: Anaesthesia
     Route: 065
  2. ROPIVACAINE [Suspect]
     Active Substance: ROPIVACAINE
     Indication: Anaesthesia
     Route: 065

REACTIONS (4)
  - Neurotoxicity [Recovered/Resolved]
  - Nausea [Recovered/Resolved]
  - Hypotension [Recovered/Resolved]
  - Confusional state [Recovered/Resolved]
